FAERS Safety Report 9174267 (Version 1)
Quarter: 2013Q1

REPORT INFORMATION
  Report Type: Spontaneous
  Country: GB (occurrence: GB)
  Receive Date: 20130320
  Receipt Date: 20130320
  Transmission Date: 20140127
  Serious: Yes (Death, Hospitalization)
  Sender: FDA-Public Use
  Company Number: PHHY2013GB026327

PATIENT
  Age: 5 Decade
  Sex: Female

DRUGS (3)
  1. CITALOPRAM [Suspect]
     Indication: DEPRESSION
     Dosage: 10 MG, UNK
     Route: 048
     Dates: start: 2012, end: 2012
  2. CITALOPRAM [Suspect]
     Dosage: 20 MG, UNK
     Route: 048
     Dates: start: 201208, end: 201212
  3. EPILIM [Concomitant]

REACTIONS (2)
  - Cerebral haemorrhage [Fatal]
  - Syncope [Not Recovered/Not Resolved]
